FAERS Safety Report 7572083-1 (Version None)
Quarter: 2011Q2

REPORT INFORMATION
  Report Type: 
  Country: None (occurrence: None)
  Receive Date: 20110624
  Receipt Date: 20110609
  Transmission Date: 20111010
  Serious: Yes (Hospitalization, Other)
  Sender: FDA-Public Use
  Company Number: FR-VERTEX PHARMACEUTICALS INC.-AE-2011-000318

PATIENT
  Sex: Female
  Weight: 69 kg

DRUGS (6)
  1. COPEGUS [Concomitant]
  2. COPEGUS [Concomitant]
     Indication: HEPATITIS C
     Dates: start: 20110314
  3. VERPAMIL HCL [Concomitant]
     Indication: HYPERTENSION
  4. MODURETIC 5-50 [Concomitant]
     Indication: HYPERTENSION
  5. VX-950 [Suspect]
     Indication: HEPATITIS C
     Dates: start: 20110314, end: 20110601
  6. PEGASYS [Concomitant]
     Indication: HEPATITIS C
     Dates: start: 20110314

REACTIONS (7)
  - RENAL FAILURE [None]
  - OEDEMA PERIPHERAL [None]
  - ANAEMIA [None]
  - HYPOKALAEMIA [None]
  - HYPEROSMOLAR STATE [None]
  - THROMBOCYTOPENIA [None]
  - PRURITUS [None]
